FAERS Safety Report 8120162-2 (Version None)
Quarter: 2012Q1

REPORT INFORMATION
  Report Type: 
  Country: None (occurrence: None)
  Receive Date: 20120207
  Receipt Date: 20120202
  Transmission Date: 20120608
  Serious: Yes (Other)
  Sender: FDA-Public Use
  Company Number: US-PFIZER INC-2011127077

PATIENT
  Sex: Female
  Weight: 44.4 kg

DRUGS (7)
  1. PRISTIQ [Suspect]
     Indication: STRESS
  2. PRISTIQ [Suspect]
     Indication: FIBROMYALGIA
  3. PRISTIQ [Suspect]
     Indication: MUSCULOSKELETAL PAIN
  4. PRISTIQ [Suspect]
     Indication: DEPRESSION
     Dosage: 100 MG DAILY
     Route: 048
     Dates: start: 20080101, end: 20111201
  5. XYREM [Concomitant]
     Indication: NARCOLEPSY
     Dosage: 2.25 MG, DAILY AT BEDTIME
     Route: 048
     Dates: start: 20090201
  6. PRISTIQ [Suspect]
     Indication: ANXIETY
  7. NUVIGIL [Concomitant]
     Indication: NARCOLEPSY
     Dosage: 100 MG, DAILY
     Route: 048
     Dates: start: 20090201

REACTIONS (7)
  - EAR NEOPLASM [None]
  - MALAISE [None]
  - FACIAL PAIN [None]
  - NAUSEA [None]
  - BACK DISORDER [None]
  - PNEUMONIA [None]
  - NECK PAIN [None]
